FAERS Safety Report 16463023 (Version 2)
Quarter: 2019Q3

REPORT INFORMATION
  Report Type: Spontaneous
  Country: JP (occurrence: JP)
  Receive Date: 20190621
  Receipt Date: 20190710
  Transmission Date: 20191004
  Serious: Yes (Hospitalization, Other)
  Sender: FDA-Public Use
  Company Number: JP-GLAXOSMITHKLINE-JP2019JPN109732

PATIENT
  Age: 87 Year
  Sex: Female

DRUGS (6)
  1. SOLDEM 3A [Concomitant]
     Active Substance: CARBOHYDRATES\POTASSIUM CHLORIDE\SODIUM CHLORIDE\SODIUM LACTATE
     Indication: HYPOPHAGIA
     Dosage: UNK
     Route: 041
  2. LANSOPRAZOLE. [Concomitant]
     Active Substance: LANSOPRAZOLE
     Indication: DECREASED APPETITE
     Dosage: 15 MG, UNK
     Route: 048
  3. AMOXICILLIN TRIHYDRATE [Suspect]
     Active Substance: AMOXICILLIN
     Indication: BLISTER
     Dosage: UNK
     Route: 048
     Dates: start: 201803
  4. ZOVIRAX [Suspect]
     Active Substance: ACYCLOVIR
     Indication: HERPES ZOSTER
     Dosage: 750 MG, 1D
     Route: 041
     Dates: start: 201803
  5. PREDNISOLONE. [Concomitant]
     Active Substance: PREDNISOLONE
     Indication: DECREASED APPETITE
     Dosage: 5 MG, UNK
     Route: 048
  6. VIDARABINE OINTMENT [Concomitant]
     Indication: HERPES ZOSTER
     Dosage: UNK
     Route: 061

REACTIONS (9)
  - Mouth ulceration [Unknown]
  - Condition aggravated [Recovering/Resolving]
  - Inappropriate antidiuretic hormone secretion [Unknown]
  - Drug ineffective [Unknown]
  - Hypophagia [Recovered/Resolved]
  - Herpes zoster [Recovering/Resolving]
  - Hyperthermia [Recovered/Resolved]
  - Incorrect product administration duration [Unknown]
  - Trismus [Unknown]

NARRATIVE: CASE EVENT DATE: 201803
